FAERS Safety Report 24445195 (Version 2)
Quarter: 2024Q4

REPORT INFORMATION
  Report Type: Spontaneous
  Country: US (occurrence: US)
  Receive Date: 20241016
  Receipt Date: 20241030
  Transmission Date: 20250115
  Serious: Yes (Other)
  Sender: BLUEPRINT MEDICINES
  Company Number: US-Blueprint Medicines Corporation-SP-US-2024-002064

PATIENT
  Sex: Female

DRUGS (3)
  1. AYVAKIT [Suspect]
     Active Substance: AVAPRITINIB
     Indication: Indolent systemic mastocytosis
     Route: 065
  2. AYVAKIT [Suspect]
     Active Substance: AVAPRITINIB
     Indication: Diffuse cutaneous mastocytosis
  3. AYVAKIT [Suspect]
     Active Substance: AVAPRITINIB
     Indication: Smouldering systemic mastocytosis

REACTIONS (11)
  - Osteoporotic fracture [Unknown]
  - Chronic kidney disease [Unknown]
  - Uterine disorder [Unknown]
  - Endometrial hyperplasia [Unknown]
  - Back pain [Unknown]
  - Bone pain [Unknown]
  - Fatigue [Unknown]
  - Headache [Unknown]
  - Pigmentation disorder [Unknown]
  - Pruritus [Unknown]
  - Off label use [Unknown]
